FAERS Safety Report 8900588 (Version 1)
Quarter: 2012Q4

REPORT INFORMATION
  Report Type: 
  Country: CA (occurrence: CA)
  Receive Date: 20121109
  Receipt Date: 20121109
  Transmission Date: 20130627
  Serious: Yes (Other)
  Sender: FDA-Public Use
  Company Number: PHHY2005CA007836

PATIENT

DRUGS (4)
  1. SANDOSTATIN LAR [Suspect]
     Indication: CARCINOID TUMOUR
     Dosage: 60 mg, every 3 weeks
     Dates: start: 20040701
  2. LASIX [Concomitant]
  3. LOSEC                                   /CAN/ [Concomitant]
  4. MAGNESIUM [Concomitant]

REACTIONS (7)
  - Blood pressure decreased [Unknown]
  - Flushing [Unknown]
  - Back pain [Unknown]
  - Tachycardia [Unknown]
  - Bradycardia [Unknown]
  - Diarrhoea [Unknown]
  - Rash [Unknown]
